FAERS Safety Report 19671033 (Version 1)
Quarter: 2021Q3

REPORT INFORMATION
  Report Type: Other
  Country: SI (occurrence: SI)
  Receive Date: 20210806
  Receipt Date: 20210806
  Transmission Date: 20211014
  Serious: Yes (Other)
  Sender: FDA-Public Use
  Company Number: SI-ROCHE-2883123

PATIENT

DRUGS (3)
  1. NIVOLUMAB [Suspect]
     Active Substance: NIVOLUMAB
     Indication: NON-SMALL CELL LUNG CANCER METASTATIC
     Route: 065
  2. ATEZOLIZUMAB. [Suspect]
     Active Substance: ATEZOLIZUMAB
     Indication: NON-SMALL CELL LUNG CANCER METASTATIC
     Route: 065
  3. PEMBROLIZUMAB. [Suspect]
     Active Substance: PEMBROLIZUMAB
     Indication: NON-SMALL CELL LUNG CANCER METASTATIC
     Route: 065

REACTIONS (16)
  - Hepatotoxicity [Unknown]
  - Cushing^s syndrome [Unknown]
  - Hyperthyroidism [Unknown]
  - Anaemia [Unknown]
  - Colitis [Unknown]
  - Skin disorder [Unknown]
  - Agranulocytosis [Unknown]
  - Diabetes mellitus [Unknown]
  - Fatigue [Unknown]
  - Myalgia [Unknown]
  - Infection [Unknown]
  - Hypothyroidism [Unknown]
  - Mesenteritis [Unknown]
  - Diarrhoea [Unknown]
  - Stomatitis [Unknown]
  - Arthralgia [Unknown]
